FAERS Safety Report 8617962-9 (Version None)
Quarter: 2012Q3

REPORT INFORMATION
  Report Type: 
  Country: None (occurrence: None)
  Receive Date: 20120824
  Receipt Date: 20120816
  Transmission Date: 20120928
  Serious: Yes (Other)
  Sender: FDA-Public Use
  Company Number: US-009507513-1207USA010308

PATIENT

DRUGS (2)
  1. FOSAMAX [Suspect]
     Dosage: UNK
     Dates: start: 20040501, end: 20100401
  2. FOSAMAX [Suspect]
     Dosage: UNK
     Route: 048
     Dates: start: 20040501, end: 20100401

REACTIONS (1)
  - TIBIA FRACTURE [None]
